FAERS Safety Report 14334500 (Version 1)
Quarter: 2017Q4

REPORT INFORMATION
  Report Type: Report from Study
  Country: AU (occurrence: AU)
  Receive Date: 20171228
  Receipt Date: 20171228
  Transmission Date: 20180321
  Serious: Yes (Other)
  Sender: FDA-Public Use
  Company Number: AU-ALEXION PHARMACEUTICALS INC.-A201602498

PATIENT
  Age: 22 Year
  Sex: Male
  Weight: 60 kg

DRUGS (3)
  1. ENB-0040 [Suspect]
     Active Substance: ASFOTASE ALFA
     Dosage: 60 MG, 6 DAYS/WEEK
     Route: 058
  2. ENB-0040 [Suspect]
     Active Substance: ASFOTASE ALFA
     Dosage: UNK, QD X1/DAY
     Route: 058
  3. ENB-0040 [Suspect]
     Active Substance: ASFOTASE ALFA
     Indication: HYPOPHOSPHATASIA
     Dosage: 60 MG, 6 DAYS PER WEEK
     Route: 058
     Dates: start: 20160128

REACTIONS (8)
  - Injection site induration [Recovered/Resolved]
  - Chest pain [Unknown]
  - Chest discomfort [Recovered/Resolved]
  - Injection site erythema [Recovered/Resolved]
  - Blood alkaline phosphatase increased [Unknown]
  - Injection site mass [Unknown]
  - Injection site reaction [Not Recovered/Not Resolved]
  - Nausea [Recovered/Resolved]

NARRATIVE: CASE EVENT DATE: 20160218
